FAERS Safety Report 8764815 (Version 1)
Quarter: 2012Q4

REPORT INFORMATION
  Report Type: 
  Country: US (occurrence: US)
  Receive Date: 20120831
  Receipt Date: 20120831
  Transmission Date: 20130627
  Serious: Yes (Hospitalization)
  Sender: FDA-Public Use
  Company Number: US-ACTELION-A-US2012-65759

PATIENT
  Age: 38 Year
  Sex: Female

DRUGS (3)
  1. TRACLEER [Suspect]
     Indication: PULMONARY ARTERIAL HYPERTENSION
     Dosage: UNK mg, UNK
     Route: 048
  2. TRACLEER [Suspect]
     Dosage: UNK
     Route: 048
  3. COUMADIN [Concomitant]

REACTIONS (7)
  - Dyspnoea [Unknown]
  - Vomiting [Unknown]
  - Pyrexia [Unknown]
  - Anaemia [Unknown]
  - Oedema peripheral [Unknown]
  - Condition aggravated [Unknown]
  - Headache [Unknown]
